FAERS Safety Report 4275137-0 (Version None)
Quarter: 2004Q1

REPORT INFORMATION
  Report Type: 
  Country: None (occurrence: None)
  Receive Date: 20040121
  Receipt Date: 20040105
  Transmission Date: 20041129
  Serious: Yes (Death, Hospitalization)
  Sender: FDA-Public Use
  Company Number: 200410183GDDC

PATIENT
  Age: 75 Year
  Sex: Female
  Weight: 59.4 kg

DRUGS (3)
  1. TAXOTERE [Suspect]
     Indication: LUNG CANCER METASTATIC
     Route: 042
     Dates: start: 20031203, end: 20031223
  2. CARBOPLATIN [Suspect]
     Indication: LUNG CANCER METASTATIC
     Route: 042
     Dates: start: 20031223, end: 20031223
  3. CISPLATIN [Suspect]
     Indication: LUNG CANCER METASTATIC
     Route: 042
     Dates: start: 20031203, end: 20031210

REACTIONS (7)
  - CHRONIC OBSTRUCTIVE AIRWAYS DISEASE EXACERBATED [None]
  - COUGH [None]
  - DYSPNOEA EXACERBATED [None]
  - HOARSENESS [None]
  - LUNG NEOPLASM MALIGNANT [None]
  - PNEUMONIA [None]
  - VIRAL INFECTION [None]
